FAERS Safety Report 4305420-1 (Version None)
Quarter: 2004Q1

REPORT INFORMATION
  Report Type: 
  Country: None (occurrence: None)
  Receive Date: 20040226
  Receipt Date: 20031106
  Transmission Date: 20041129
  Serious: No
  Sender: FDA-Public Use
  Company Number: US-BRISTOL-MYERS SQUIBB COMPANY-12430377

PATIENT
  Age: 64 Year
  Sex: Male
  Weight: 122 kg

DRUGS (11)
  1. TAXOL [Suspect]
     Indication: OESOPHAGEAL CARCINOMA
     Dosage: ADMINISTERED OVER 1.5 HOURS
     Route: 042
     Dates: start: 20031001, end: 20031001
  2. CARBOPLATIN [Suspect]
     Indication: OESOPHAGEAL CARCINOMA
     Dosage: ADMINISTERED OVER 1 HOUR
     Route: 042
     Dates: start: 20031001, end: 20031001
  3. DECADRON [Concomitant]
     Indication: PREMEDICATION
     Dosage: 8 MG THE EVENING BEFORE TREATMENT
     Dates: start: 20031001
  4. KYTRIL [Concomitant]
     Indication: PREMEDICATION
     Dates: start: 20031001
  5. BENADRYL [Concomitant]
     Indication: PREMEDICATION
     Dates: start: 20031001
  6. TAGAMET [Concomitant]
     Indication: PREMEDICATION
     Dates: start: 20031001
  7. TYLENOL (CAPLET) [Concomitant]
     Indication: PREMEDICATION
     Dosage: 2 TABLETS
  8. ACCUPRIL [Concomitant]
  9. HYDROCHLOROTHIAZIDE [Concomitant]
  10. SINGULAIR [Concomitant]
  11. PROVENTIL [Concomitant]

REACTIONS (4)
  - ABDOMINAL DISCOMFORT [None]
  - FLUSHING [None]
  - PANIC REACTION [None]
  - VOMITING [None]
